FAERS Safety Report 15408771 (Version 2)
Quarter: 2022Q3

REPORT INFORMATION
  Report Type: Spontaneous
  Country: DE (occurrence: DE)
  Receive Date: 20180920
  Receipt Date: 20220929
  Transmission Date: 20221026
  Serious: Yes (Other)
  Sender: FDA-Public Use
  Company Number: PHHY2018DE098510

PATIENT
  Age: 54 Year
  Sex: Male

DRUGS (5)
  1. TACROLIMUS [Interacting]
     Active Substance: TACROLIMUS
     Indication: Renal transplant
     Dosage: UNK
     Route: 065
  2. TACROLIMUS [Interacting]
     Active Substance: TACROLIMUS
     Indication: Immunosuppressant drug therapy
  3. CLARITHROMYCIN [Interacting]
     Active Substance: CLARITHROMYCIN
     Indication: Pneumonia
     Dosage: UNK
     Route: 065
  4. CLOPREDNOL [Concomitant]
     Active Substance: CLOPREDNOL
     Indication: Renal transplant
     Dosage: UNK (LOW DOSE)
     Route: 065
  5. CLOPREDNOL [Concomitant]
     Active Substance: CLOPREDNOL
     Indication: Immunosuppressant drug therapy

REACTIONS (3)
  - Acute kidney injury [Recovered/Resolved]
  - Toxicity to various agents [Recovering/Resolving]
  - Drug interaction [Unknown]
